FAERS Safety Report 22189825 (Version 3)
Quarter: 2023Q2

REPORT INFORMATION
  Report Type: Spontaneous
  Country: CA (occurrence: CA)
  Receive Date: 20230410
  Receipt Date: 20230511
  Transmission Date: 20230722
  Serious: Yes (Life-Threatening, Other)
  Sender: FDA-Public Use
  Company Number: CA-LUPIN PHARMACEUTICALS INC.-2023-02651

PATIENT

DRUGS (1)
  1. JENCYCLA [Suspect]
     Active Substance: NORETHINDRONE
     Indication: Contraception
     Dosage: UNK
     Route: 048
     Dates: start: 20220103, end: 20220617

REACTIONS (12)
  - Triple positive breast cancer [Unknown]
  - Invasive breast carcinoma [Unknown]
  - Vaginal discharge [Unknown]
  - Vaginal disorder [Unknown]
  - Hormone level abnormal [Unknown]
  - Swelling [Unknown]
  - Weight increased [Unknown]
  - Illness [Unknown]
  - Treatment noncompliance [Unknown]
  - Heavy menstrual bleeding [Unknown]
  - Cystitis [Unknown]
  - Increased appetite [Unknown]

NARRATIVE: CASE EVENT DATE: 20220101
